FAERS Safety Report 8304380-6 (Version None)
Quarter: 2012Q2

REPORT INFORMATION
  Report Type: 
  Country: None (occurrence: None)
  Receive Date: 20120423
  Receipt Date: 20120410
  Transmission Date: 20120825
  Serious: Yes (Life-Threatening, Hospitalization)
  Sender: FDA-Public Use
  Company Number: DE-ELI_LILLY_AND_COMPANY-DE201204002769

PATIENT
  Age: 39 Year
  Sex: Female

DRUGS (3)
  1. TRAMADOL HCL [Concomitant]
     Dosage: UNK, UNKNOWN
  2. IBUPROFEN [Concomitant]
     Dosage: UNK, UNKNOWN
  3. CYMBALTA [Suspect]
     Dosage: UNK, UNKNOWN

REACTIONS (5)
  - TACHYCARDIA [None]
  - PUPILS UNEQUAL [None]
  - SOMNOLENCE [None]
  - HYPERTENSION [None]
  - AREFLEXIA [None]
